FAERS Safety Report 25790589 (Version 1)
Quarter: 2025Q3

REPORT INFORMATION
  Report Type: Spontaneous
  Country: US (occurrence: None)
  Receive Date: 20250910
  Receipt Date: 20250910
  Transmission Date: 20251020
  Serious: Yes (Other)
  Sender: FDA-CTU
  Company Number: None

PATIENT
  Age: 25 Year
  Sex: Female

DRUGS (1)
  1. CIMZIA [Suspect]
     Active Substance: CERTOLIZUMAB PEGOL
     Indication: Axial spondyloarthritis
     Dosage: FREQUENCY : MONTHLY;?
     Route: 058

REACTIONS (3)
  - Therapy interrupted [None]
  - Joint stiffness [None]
  - Spinal osteoarthritis [None]

NARRATIVE: CASE EVENT DATE: 20150909
